FAERS Safety Report 7196030-X (Version None)
Quarter: 2010Q4

REPORT INFORMATION
  Report Type: 
  Country: None (occurrence: None)
  Receive Date: 20101223
  Receipt Date: 20101014
  Transmission Date: 20110411
  Serious: No
  Sender: FDA-Public Use
  Company Number: US-AMGEN-USASP2010000129

PATIENT

DRUGS (2)
  1. ENBREL [Suspect]
     Indication: RHEUMATOID ARTHRITIS
     Route: 065
     Dates: start: 20100917
  2. TREXALL [Concomitant]
     Dosage: 1 MG, QWK
     Route: 065
     Dates: start: 20100701

REACTIONS (5)
  - COUGH [None]
  - NASAL CONGESTION [None]
  - NAUSEA [None]
  - SNEEZING [None]
  - UPPER RESPIRATORY TRACT CONGESTION [None]
